FAERS Safety Report 5996652-5 (Version None)
Quarter: 2008Q4

REPORT INFORMATION
  Report Type: 
  Country: None (occurrence: None)
  Receive Date: 20081212
  Receipt Date: 20081206
  Transmission Date: 20090506
  Serious: Yes (Hospitalization)
  Sender: FDA-Public Use
  Company Number: US-MERCK-0812USA01816

PATIENT
  Sex: Female

DRUGS (2)
  1. EMEND [Suspect]
     Indication: PROPHYLAXIS OF NAUSEA AND VOMITING
     Route: 065
  2. IFOSFAMIDE [Concomitant]
     Indication: CHEMOTHERAPY
     Route: 065

REACTIONS (1)
  - MENTAL STATUS CHANGES [None]
